FAERS Safety Report 7075319-9 (Version None)
Quarter: 2010Q4

REPORT INFORMATION
  Report Type: 
  Country: None (occurrence: None)
  Receive Date: 20101030
  Receipt Date: 20100812
  Transmission Date: 20110411
  Serious: No
  Sender: FDA-Public Use
  Company Number: US-WYE-H16921010

PATIENT
  Age: 53 Year
  Sex: Male

DRUGS (1)
  1. ALAVERT D-12 [Suspect]
     Indication: HYPERSENSITIVITY
     Route: 048
     Dates: start: 20100805

REACTIONS (1)
  - DRUG EFFECT DECREASED [None]
